FAERS Safety Report 22232665 (Version 1)
Quarter: 2023Q2

REPORT INFORMATION
  Report Type: Spontaneous
  Country: US (occurrence: None)
  Receive Date: 20230420
  Receipt Date: 20230420
  Transmission Date: 20230722
  Serious: No
  Sender: FDA-Public Use
  Company Number: US-ROCHE-3086010

PATIENT
  Age: 47 Year
  Sex: Male
  Weight: 68.100 kg

DRUGS (1)
  1. AVASTIN [Suspect]
     Active Substance: BEVACIZUMAB
     Indication: Rectosigmoid cancer
     Route: 065
     Dates: start: 20210301

REACTIONS (4)
  - Dysphagia [Unknown]
  - Oropharyngeal pain [Unknown]
  - Ulcer [Unknown]
  - Peripheral swelling [Unknown]

NARRATIVE: CASE EVENT DATE: 20220414
